FAERS Safety Report 23943625 (Version 2)
Quarter: 2024Q3

REPORT INFORMATION
  Report Type: Spontaneous
  Country: EG (occurrence: EG)
  Receive Date: 20240606
  Receipt Date: 20240813
  Transmission Date: 20241017
  Serious: Yes (Hospitalization, Other)
  Sender: NOVO NORDISK
  Company Number: EG-NOVOPROD-1229095

PATIENT
  Age: 70 Year
  Sex: Male
  Weight: 94 kg

DRUGS (19)
  1. ACTRAPID [Suspect]
     Active Substance: INSULIN HUMAN
     Dosage: 60 IU, QD (30U MORNING -30U NIGHT) FROM 35 YEARS
     Route: 058
  2. ACTRAPID [Suspect]
     Active Substance: INSULIN HUMAN
     Dosage: 60 IU, QD (30U MORNING -30U NIGHT) (DURING AMPUTATION)
     Route: 058
     Dates: start: 2013
  3. ACTRAPID [Suspect]
     Active Substance: INSULIN HUMAN
     Dosage: UNK (DURING HYPOGLYCAEMIA AND HYPOGLYCAEMAI)
     Route: 058
  4. ACTRAPID [Suspect]
     Active Substance: INSULIN HUMAN
     Indication: Diabetes mellitus
     Dosage: 60 IU, QD (30U MORNING -30U NIGHT) FROM 35 YEARS
     Route: 058
  5. HYDROCHLOROTHIAZIDE\VALSARTAN [Concomitant]
     Active Substance: HYDROCHLOROTHIAZIDE\VALSARTAN
     Indication: Hypertension
     Dosage: 1 TAB MORNING
     Route: 048
  6. NORVASC [Concomitant]
     Active Substance: AMLODIPINE BESYLATE
     Indication: Hypertension
     Dosage: 1 TAB NIGHT
     Route: 048
  7. ASPIRIN [Concomitant]
     Active Substance: ASPIRIN
     Indication: Anticoagulant therapy
     Dosage: 1 TAB DAILY
     Route: 048
  8. NEUROPATEX [Concomitant]
     Indication: Prophylaxis
     Dosage: 1 TAB DAILY
     Route: 048
  9. FOLIC ACID [Concomitant]
     Active Substance: FOLIC ACID
     Indication: Supplementation therapy
     Dosage: 1 TAB DAILY
     Route: 048
  10. MINALAX [Concomitant]
     Indication: Laxative supportive care
     Dosage: 1 TAB DAILY
     Route: 048
  11. CEREBROMAP [Concomitant]
     Indication: Prophylaxis
     Dosage: 1 TAB DAILY
     Route: 048
  12. GAPTIN [Concomitant]
     Indication: Diabetic neuropathy
     Dosage: 1 TAB DAILY
     Route: 048
  13. PLAQUENIL [Concomitant]
     Active Substance: HYDROXYCHLOROQUINE SULFATE
     Indication: Arthralgia
     Dosage: 1 TAB DAILY
     Route: 048
  14. FELDENE [Concomitant]
     Active Substance: PIROXICAM
     Indication: Rheumatoid arthritis
     Dosage: UNK
     Route: 030
  15. FELDENE [Concomitant]
     Active Substance: PIROXICAM
     Indication: Diabetic neuropathy
  16. DICLOFENAC [Concomitant]
     Active Substance: DICLOFENAC
     Indication: Rheumatoid arthritis
     Dosage: UNK
     Route: 030
  17. DICLOFENAC [Concomitant]
     Active Substance: DICLOFENAC
     Indication: Diabetic neuropathy
  18. DIETARY SUPPLEMENT\HERBALS\MILK THISTLE [Concomitant]
     Active Substance: MILK THISTLE
     Indication: Hepatic steatosis
     Dosage: 1 TAB DAILY
     Route: 048
  19. RELAXON [EPERISONE HYDROCHLORIDE] [Concomitant]
     Indication: Prophylaxis
     Dosage: 1 TAB DAILY
     Route: 048

REACTIONS (10)
  - Joint injury [Recovered/Resolved]
  - Gangrene [Recovered/Resolved]
  - Cataract [Recovered/Resolved]
  - Diabetic neuropathy [Unknown]
  - Rheumatoid arthritis [Not Recovered/Not Resolved]
  - Diabetic foot [Unknown]
  - Diabetes mellitus [Unknown]
  - Peripheral artery surgery [Unknown]
  - Hypoglycaemia [Recovered/Resolved]
  - Hyperglycaemia [Recovered/Resolved]
